FAERS Safety Report 19935396 (Version 6)
Quarter: 2021Q4

REPORT INFORMATION
  Report Type: Report from Study
  Country: US (occurrence: US)
  Receive Date: 20211009
  Receipt Date: 20211222
  Transmission Date: 20220304
  Serious: No
  Sender: FDA-Public Use
  Company Number: US-NOVARTISTESTPH-NVSC2021US231179

PATIENT
  Sex: Female

DRUGS (1)
  1. ENTRESTO [Suspect]
     Active Substance: SACUBITRIL\VALSARTAN
     Indication: Product used for unknown indication
     Dosage: UNK
     Route: 065

REACTIONS (9)
  - Nasopharyngitis [Unknown]
  - Fatigue [Unknown]
  - Nasal congestion [Unknown]
  - Weight decreased [Unknown]
  - Chest pain [Not Recovered/Not Resolved]
  - Insomnia [Unknown]
  - Dyspepsia [Unknown]
  - Hiatus hernia [Unknown]
  - Pain [Unknown]
